FAERS Safety Report 9058632 (Version 1)
Quarter: 2013Q1

REPORT INFORMATION
  Report Type: Spontaneous
  Country: FR (occurrence: FR)
  Receive Date: 20130211
  Receipt Date: 20130211
  Transmission Date: 20140127
  Serious: Yes (Hospitalization)
  Sender: FDA-Public Use
  Company Number: FR-SANOFI-AVENTIS-2013SA008687

PATIENT
  Age: 63 Year
  Sex: Female

DRUGS (7)
  1. LOVENOX [Suspect]
     Indication: PRODUCT USED FOR UNKNOWN INDICATION
     Route: 058
     Dates: start: 20121127, end: 20121216
  2. PREVISCAN [Suspect]
     Indication: ARRHYTHMIA
     Dosage: 3/4 AND 1 TABLET ALTERNATIVELY
     Route: 048
     Dates: end: 20121127
  3. PREVISCAN [Suspect]
     Indication: ARRHYTHMIA
     Route: 048
     Dates: start: 20121216
  4. LEVOTHYROX [Concomitant]
  5. FLECAINE [Concomitant]
  6. SPIRIVA [Concomitant]
  7. FUROSEMIDE [Concomitant]

REACTIONS (2)
  - Anaemia [Recovered/Resolved]
  - Ulcer [Recovered/Resolved]
